FAERS Safety Report 8388398-3 (Version None)
Quarter: 2012Q2

REPORT INFORMATION
  Report Type: 
  Country: None (occurrence: None)
  Receive Date: 20120525
  Receipt Date: 20120514
  Transmission Date: 20120825
  Serious: Yes (Other)
  Sender: FDA-Public Use
  Company Number: ES-ELI_LILLY_AND_COMPANY-ES201205005544

PATIENT
  Sex: Male

DRUGS (2)
  1. CYMBALTA [Suspect]
     Dosage: 60 MG, UNK
     Dates: start: 20110101, end: 20120101
  2. CYMBALTA [Suspect]
     Dosage: 30 MG, UNK
     Dates: end: 20110101

REACTIONS (3)
  - PHOTOPHOBIA [None]
  - OCULOGYRIC CRISIS [None]
  - DRY EYE [None]
